FAERS Safety Report 20428154 (Version 2)
Quarter: 2022Q1

REPORT INFORMATION
  Report Type: Report from Study
  Country: DZ (occurrence: None)
  Receive Date: 20220204
  Receipt Date: 20220223
  Transmission Date: 20220423
  Serious: Yes (Hospitalization)
  Sender: FDA-Public Use
  Company Number: DZ-Merck Healthcare KGaA-9297058

PATIENT
  Age: 44 Year
  Sex: Female

DRUGS (2)
  1. REBIF [Suspect]
     Active Substance: INTERFERON BETA-1A
     Indication: Multiple sclerosis
     Route: 058
     Dates: start: 20210131, end: 20220120
  2. REBIF [Suspect]
     Active Substance: INTERFERON BETA-1A
     Route: 058
     Dates: start: 20220129

REACTIONS (7)
  - Cyst [Recovering/Resolving]
  - Condition aggravated [Recovering/Resolving]
  - Hypoaesthesia [Not Recovered/Not Resolved]
  - Limb discomfort [Unknown]
  - Paraesthesia [Unknown]
  - Anaemia [Unknown]
  - Scar pain [Recovering/Resolving]

NARRATIVE: CASE EVENT DATE: 20220101
